FAERS Safety Report 26000440 (Version 1)
Quarter: 2025Q4

REPORT INFORMATION
  Report Type: Spontaneous
  Country: US (occurrence: US)
  Receive Date: 20251105
  Receipt Date: 20251105
  Transmission Date: 20260118
  Serious: No
  Sender: ANI
  Company Number: US-ANIPHARMA-2025-US-038430

PATIENT
  Sex: Female

DRUGS (10)
  1. CORTICOTROPIN [Suspect]
     Active Substance: CORTICOTROPIN
     Indication: Gout
     Dosage: 40 UNIT 4 TIMES A WEEK
     Route: 058
  2. METHOCARBAMOL [Concomitant]
     Active Substance: METHOCARBAMOL
  3. AMITRIPTYLINE HYDROCHLORIDE [Concomitant]
     Active Substance: AMITRIPTYLINE HYDROCHLORIDE
  4. ALLOPURINOL [Concomitant]
     Active Substance: ALLOPURINOL
  5. LISINOPRIL/HYDROCHLOROTHI [Concomitant]
  6. ROSUVASTATIN CALCIUM [Concomitant]
     Active Substance: ROSUVASTATIN CALCIUM
  7. CELECOXIB [Concomitant]
     Active Substance: CELECOXIB
  8. VITAMIN D [Concomitant]
     Active Substance: VITAMIN D NOS
  9. ESCITALOPRAM OXALATE [Concomitant]
     Active Substance: ESCITALOPRAM OXALATE
  10. COLCHICINE [Concomitant]
     Active Substance: COLCHICINE

REACTIONS (1)
  - Drug ineffective [Not Recovered/Not Resolved]
